FAERS Safety Report 18333298 (Version 1)
Quarter: 2020Q4

REPORT INFORMATION
  Report Type: Spontaneous
  Country: US (occurrence: US)
  Receive Date: 20201001
  Receipt Date: 20201001
  Transmission Date: 20210113
  Serious: No
  Sender: FDA-Public Use
  Company Number: US-GW PHARMA-202009USGW03270

PATIENT

DRUGS (2)
  1. EPIDIOLEX [Suspect]
     Active Substance: CANNABIDIOL
     Indication: EPILEPSY
     Dosage: 780 MILLIGRAM, BID (WITH FOOD)
     Route: 048
     Dates: start: 20191101, end: 202009
  2. EPIDIOLEX [Suspect]
     Active Substance: CANNABIDIOL
     Dosage: 500 MILLIGRAM, BID (DECREASED DOSE)
     Route: 048
     Dates: start: 202009

REACTIONS (1)
  - Appetite disorder [Recovered/Resolved]

NARRATIVE: CASE EVENT DATE: 20200925
